FAERS Safety Report 8544662-6 (Version None)
Quarter: 2012Q3

REPORT INFORMATION
  Report Type: 
  Country: None (occurrence: None)
  Receive Date: 20120727
  Receipt Date: 20120717
  Transmission Date: 20120928
  Serious: Yes (Hospitalization)
  Sender: FDA-Public Use
  Company Number: JP-BRISTOL-MYERS SQUIBB COMPANY-16743320

PATIENT
  Age: 75 Year
  Sex: Male

DRUGS (7)
  1. AVAPRO [Suspect]
     Indication: HYPERTENSION
     Route: 048
     Dates: start: 20120618, end: 20120623
  2. ALLOPURINOL [Concomitant]
     Route: 048
  3. CRESTOR [Concomitant]
     Indication: DYSLIPIDAEMIA
     Route: 048
  4. AMLODIPINE [Concomitant]
     Indication: HYPERTENSION
     Route: 048
  5. PLETAL [Concomitant]
     Indication: PERIPHERAL ARTERIAL OCCLUSIVE DISEASE
     Route: 048
  6. ALLOPURINOL [Concomitant]
     Indication: HYPERURICAEMIA
     Route: 048
  7. ALDOMET [Concomitant]
     Route: 048

REACTIONS (3)
  - EOSINOPHIL COUNT INCREASED [None]
  - RENAL FAILURE CHRONIC [None]
  - DIARRHOEA [None]
